FAERS Safety Report 21731337 (Version 3)
Quarter: 2022Q4

REPORT INFORMATION
  Report Type: Spontaneous
  Country: US (occurrence: US)
  Receive Date: 20221215
  Receipt Date: 20221222
  Transmission Date: 20230112
  Serious: No
  Sender: FDA-Public Use
  Company Number: US-AMGEN-USASP2022212900

PATIENT
  Age: 61 Year
  Sex: Female

DRUGS (12)
  1. OTEZLA [Suspect]
     Active Substance: APREMILAST
     Indication: Psoriatic arthropathy
     Dosage: 30 MILLIGRAM, BID
     Route: 048
     Dates: start: 20220304
  2. ASPIRIN [Concomitant]
     Active Substance: ASPIRIN
     Dosage: 81 MILLIGRAM
  3. ATORVASTATIN [Concomitant]
     Active Substance: ATORVASTATIN
     Dosage: 10 MILLIGRAM
  4. BENZONATATE [Concomitant]
     Active Substance: BENZONATATE
     Dosage: 200 MILLIGRAM
  5. CLARAVIS [Concomitant]
     Active Substance: ISOTRETINOIN
     Dosage: 10 MILLIGRAM
  6. DOXYCYCLINE [Concomitant]
     Active Substance: DOXYCYCLINE
     Dosage: 100 MILLIGRAM
  7. GABAPENTIN [Concomitant]
     Active Substance: GABAPENTIN
     Dosage: 600 MILLIGRAM
  8. NAPROXEN [Concomitant]
     Active Substance: NAPROXEN
     Dosage: 500 MILLIGRAM
  9. OSTEO BI-FLEX EASE [Concomitant]
  10. PROTONIX [Concomitant]
     Active Substance: PANTOPRAZOLE SODIUM
     Dosage: 40 MILLIGRAM
  11. TESSALON [Concomitant]
     Active Substance: BENZONATATE
     Dosage: PER CAP 100 MG
  12. HERBALS\TURMERIC [Concomitant]
     Active Substance: HERBALS\TURMERIC
     Dosage: 450 MILLIGRAM

REACTIONS (2)
  - Infection [Recovered/Resolved]
  - Therapy non-responder [Recovered/Resolved]

NARRATIVE: CASE EVENT DATE: 20220101
